FAERS Safety Report 11043592 (Version 1)
Quarter: 2015Q2

REPORT INFORMATION
  Report Type: Spontaneous
  Country: GB (occurrence: GB)
  Receive Date: 20150417
  Receipt Date: 20150417
  Transmission Date: 20150821
  Serious: Yes (Hospitalization)
  Sender: FDA-Public Use
  Company Number: GB-TEVA-554758ACC

PATIENT
  Age: 88 Year
  Sex: Male

DRUGS (2)
  1. LUPRON DEPOT [Concomitant]
     Active Substance: LEUPROLIDE ACETATE
  2. CITALOPRAM [Suspect]
     Active Substance: CITALOPRAM HYDROBROMIDE
     Dosage: IN THE EVENING
     Route: 048
     Dates: start: 201502

REACTIONS (3)
  - Loss of consciousness [Recovered/Resolved]
  - Seizure [Recovered/Resolved]
  - Postictal state [Unknown]

NARRATIVE: CASE EVENT DATE: 20150329
